FAERS Safety Report 7888241-2 (Version None)
Quarter: 2011Q4

REPORT INFORMATION
  Report Type: 
  Country: None (occurrence: None)
  Receive Date: 20111101
  Receipt Date: 20111031
  Transmission Date: 20120403
  Serious: Yes (Hospitalization)
  Sender: FDA-Public Use
  Company Number: ZYD-11-AE-196

PATIENT
  Age: 48 Year
  Sex: Female

DRUGS (9)
  1. COLACE [Concomitant]
  2. CELEXA [Concomitant]
  3. COUMADIN [Concomitant]
  4. LAMOTRIGINE [Suspect]
     Indication: DEPRESSION
     Dosage: 100 MG - QAM - ORAL
     Route: 048
     Dates: start: 20110826, end: 20110830
  5. RAMIPRIL [Concomitant]
  6. SYNTHROID [Concomitant]
  7. SENNA PLUS [Concomitant]
  8. LAMOTRIGINE [Suspect]
     Indication: DEPRESSION
     Dosage: 50-100 MG -
     Dates: end: 20110825
  9. COREG [Concomitant]

REACTIONS (3)
  - PRODUCT SUBSTITUTION ISSUE [None]
  - DRUG RASH WITH EOSINOPHILIA AND SYSTEMIC SYMPTOMS [None]
  - NERVE INJURY [None]
